FAERS Safety Report 12628155 (Version 3)
Quarter: 2016Q3

REPORT INFORMATION
  Report Type: Spontaneous
  Country: US (occurrence: US)
  Receive Date: 20160808
  Receipt Date: 20160808
  Transmission Date: 20161109
  Serious: No
  Sender: FDA-Public Use
  Company Number: US-BEH-2016059898

PATIENT
  Sex: Female
  Weight: 67 kg

DRUGS (35)
  1. HIZENTRA [Suspect]
     Active Substance: HUMAN IMMUNOGLOBULIN G
     Indication: IMMUNODEFICIENCY COMMON VARIABLE
     Route: 058
  2. LIDOCAINE. [Concomitant]
     Active Substance: LIDOCAINE
  3. FUROSEMIDE. [Concomitant]
     Active Substance: FUROSEMIDE
  4. SENNA [Concomitant]
     Active Substance: SENNA LEAF\SENNOSIDES\SENNOSIDES A AND B
  5. FIORICET [Concomitant]
     Active Substance: ACETAMINOPHEN\BUTALBITAL\CAFFEINE
  6. PROMETHAZINE [Concomitant]
     Active Substance: PROMETHAZINE\PROMETHAZINE HYDROCHLORIDE
  7. CALCIUM [Concomitant]
     Active Substance: CALCIUM
  8. DALIRESP [Concomitant]
     Active Substance: ROFLUMILAST
  9. SPIRIVA [Concomitant]
     Active Substance: TIOTROPIUM BROMIDE MONOHYDRATE
  10. PROZAC [Concomitant]
     Active Substance: FLUOXETINE HYDROCHLORIDE
  11. HIZENTRA [Suspect]
     Active Substance: HUMAN IMMUNOGLOBULIN G
     Route: 058
     Dates: start: 20120411
  12. DIPHENHYDRAMINE. [Concomitant]
     Active Substance: DIPHENHYDRAMINE
  13. CLONAZEPAM. [Concomitant]
     Active Substance: CLONAZEPAM
  14. ZOFRAN [Concomitant]
     Active Substance: ONDANSETRON HYDROCHLORIDE
  15. ALIGN [Concomitant]
     Active Substance: BIFIDOBACTERIUM LONGUM SUBSP. INFANTIS
  16. HIZENTRA [Suspect]
     Active Substance: HUMAN IMMUNOGLOBULIN G
     Route: 058
  17. PREDNISONE. [Concomitant]
     Active Substance: PREDNISONE
  18. ACETAMINOPHEN. [Concomitant]
     Active Substance: ACETAMINOPHEN
  19. EPIPEN [Concomitant]
     Active Substance: EPINEPHRINE
  20. PULMICORT TURBUHALER [Concomitant]
     Active Substance: BUDESONIDE
  21. BROVANA [Concomitant]
     Active Substance: ARFORMOTEROL TARTRATE
  22. LEVAQUIN [Concomitant]
     Active Substance: LEVOFLOXACIN
  23. FLONASE [Concomitant]
     Active Substance: FLUTICASONE PROPIONATE
  24. SINGULAIR [Concomitant]
     Active Substance: MONTELUKAST SODIUM
  25. POTASSIUM [Concomitant]
     Active Substance: POTASSIUM
  26. MUCINEX [Concomitant]
     Active Substance: GUAIFENESIN
  27. CRESTOR [Concomitant]
     Active Substance: ROSUVASTATIN CALCIUM
  28. CYCLOBENZAPRINE [Concomitant]
     Active Substance: CYCLOBENZAPRINE
  29. ALLEGRA [Concomitant]
     Active Substance: FEXOFENADINE HYDROCHLORIDE
  30. ASPIRIN. [Concomitant]
     Active Substance: ASPIRIN
  31. ROXICODONE [Concomitant]
     Active Substance: OXYCODONE HYDROCHLORIDE
  32. PROTONIX [Concomitant]
     Active Substance: PANTOPRAZOLE SODIUM
  33. PLAVIX [Concomitant]
     Active Substance: CLOPIDOGREL BISULFATE
  34. METOPROLOL. [Concomitant]
     Active Substance: METOPROLOL
  35. BENTYL [Concomitant]
     Active Substance: DICYCLOMINE HYDROCHLORIDE

REACTIONS (1)
  - Upper respiratory tract infection [Unknown]
